FAERS Safety Report 7150182-6 (Version None)
Quarter: 2010Q4

REPORT INFORMATION
  Report Type: 
  Country: None (occurrence: None)
  Receive Date: 20101126
  Receipt Date: 20101109
  Transmission Date: 20110411
  Serious: Yes (Death, Other)
  Sender: FDA-Public Use
  Company Number: AMAG201000401

PATIENT
  Age: 72 Year
  Sex: Female
  Weight: 86.7 kg

DRUGS (14)
  1. FERAHEME [Suspect]
     Indication: IRON DEFICIENCY ANAEMIA
     Dosage: MG, SINGLE, INTRAVENOUS
     Route: 042
     Dates: start: 20101108, end: 20101108
  2. FERAHEME [Suspect]
     Indication: NEPHROGENIC ANAEMIA
     Dosage: MG, SINGLE, INTRAVENOUS
     Route: 042
     Dates: start: 20101108, end: 20101108
  3. EPOETIN (EPOETIN ALFA) [Suspect]
     Dosage: 8100 UT, INTRAVENOUS
     Route: 042
  4. HECTOROL [Suspect]
     Dosage: 1 UG, SINGLE, INTRAVENOUS
     Route: 042
     Dates: start: 20101108, end: 20101108
  5. GAVISCON (ALGINIC ACID, ALUMINUM HYDROXIDE GEL, DRIED, MAGNESIUM TRISI [Concomitant]
  6. FLUCONAZOLE [Concomitant]
  7. LEVOTHYROXINE SODIUM [Concomitant]
  8. NEPHROCAPS (ASCORBIC ACID, BIOTIN, CYANOCOBALAMIN, FOLIC ACID, NICOTIN [Concomitant]
  9. REPAGLINIDE [Concomitant]
  10. SIMVASTATIN [Concomitant]
  11. ACETAMINOPHEN [Concomitant]
  12. CLONIDINE [Concomitant]
  13. DIPHENHYDRAMINE HCL [Concomitant]
  14. NITROGLYCERIN [Concomitant]

REACTIONS (15)
  - CYANOSIS [None]
  - DIZZINESS [None]
  - DYSPNOEA [None]
  - ERYTHEMA [None]
  - FLUSHING [None]
  - HYPERSENSITIVITY [None]
  - HYPOTENSION [None]
  - MALAISE [None]
  - PULMONARY EMBOLISM [None]
  - PULSE ABSENT [None]
  - RESPIRATORY ARREST [None]
  - SPUTUM ABNORMAL [None]
  - SUDDEN DEATH [None]
  - UNRESPONSIVE TO STIMULI [None]
  - VOMITING [None]
